FAERS Safety Report 8578143-0 (Version None)
Quarter: 2012Q3

REPORT INFORMATION
  Report Type: 
  Country: None (occurrence: None)
  Receive Date: 20120808
  Receipt Date: 20120731
  Transmission Date: 20120928
  Serious: Yes (Life-Threatening, Hospitalization, Other)
  Sender: FDA-Public Use
  Company Number: JP-CELGENEUS-087-50794-12080595

PATIENT
  Sex: Male
  Weight: 55 kg

DRUGS (21)
  1. VIDAZA [Suspect]
     Dosage: 75 MILLIGRAM/SQ. METER
     Route: 050
     Dates: start: 20120221
  2. VIDAZA [Suspect]
     Dosage: 75 MILLIGRAM/SQ. METER
     Route: 050
     Dates: start: 20120423
  3. SENNA-MINT WAF [Concomitant]
     Route: 065
     Dates: start: 20111024
  4. ACETAMINOPHEN [Concomitant]
     Route: 065
  5. MAGMITT [Concomitant]
     Route: 065
     Dates: start: 20111011
  6. ITRACONAZOLE [Concomitant]
     Route: 065
     Dates: start: 20111221, end: 20120113
  7. VIDAZA [Suspect]
     Dosage: 75 MILLIGRAM/SQ. METER
     Route: 065
     Dates: start: 20120123
  8. LANSOPRAZOLE [Concomitant]
     Route: 065
     Dates: start: 20111011
  9. VFEND [Concomitant]
     Route: 065
     Dates: start: 20111028, end: 20111205
  10. VIDAZA [Suspect]
     Route: 065
     Dates: start: 20120521
  11. PLETAL [Concomitant]
     Route: 065
     Dates: start: 20111012
  12. ZOVIRAX [Concomitant]
     Route: 065
     Dates: start: 20120501
  13. VIDAZA [Suspect]
     Dosage: 75 MILLIGRAM/SQ. METER
     Route: 041
     Dates: start: 20111012, end: 20111018
  14. LEVOTHYROXINE SODIUM [Concomitant]
     Route: 065
     Dates: start: 20111012
  15. VFEND [Concomitant]
     Route: 065
     Dates: start: 20120114, end: 20120311
  16. PLAVIX [Concomitant]
     Route: 065
     Dates: start: 20111012
  17. VIDAZA [Suspect]
     Route: 065
     Dates: start: 20111212, end: 20111220
  18. SULFAMETHOXAZOLE AND TRIMETHOPRIM [Concomitant]
     Route: 065
     Dates: start: 20111011
  19. PANTOSIN [Concomitant]
     Route: 065
     Dates: start: 20111011
  20. VALTREX [Concomitant]
     Route: 065
     Dates: start: 20111028
  21. ARMODAFINIL [Concomitant]
     Route: 065
     Dates: start: 20120312

REACTIONS (4)
  - NEUTROPHIL COUNT DECREASED [None]
  - PLATELET COUNT DECREASED [None]
  - WHITE BLOOD CELL COUNT DECREASED [None]
  - LUNG INFECTION [None]
